FAERS Safety Report 7226408-7 (Version None)
Quarter: 2011Q1

REPORT INFORMATION
  Report Type: 
  Country: None (occurrence: None)
  Receive Date: 20110110
  Receipt Date: 20110110
  Transmission Date: 20110831
  Serious: Yes (Hospitalization)
  Sender: FDA-Public Use
  Company Number: None

PATIENT
  Age: 65 Year
  Sex: Male
  Weight: 85 kg

DRUGS (1)
  1. LINEZOLID [Suspect]
     Indication: ANTIBIOTIC THERAPY
     Dosage: 600 MG BID IV
     Route: 042
     Dates: start: 20101105, end: 20101115

REACTIONS (6)
  - THROMBOCYTOPENIA [None]
  - CATHETER SITE HAEMATOMA [None]
  - HAEMATOCRIT DECREASED [None]
  - HAEMORRHAGE [None]
  - HAEMOGLOBIN DECREASED [None]
  - CONDITION AGGRAVATED [None]
